FAERS Safety Report 20521532 (Version 2)
Quarter: 2022Q1

REPORT INFORMATION
  Report Type: Spontaneous
  Country: US (occurrence: US)
  Receive Date: 20220226
  Receipt Date: 20220318
  Transmission Date: 20220423
  Serious: Yes (Death)
  Sender: FDA-Public Use
  Company Number: US-AMNEAL PHARMACEUTICALS-2022-AMRX-00411

PATIENT
  Sex: Male

DRUGS (1)
  1. BOSENTAN [Suspect]
     Active Substance: BOSENTAN
     Indication: Pulmonary hypertension
     Dosage: 62.5 MILLIGRAM, EVERY 12HR
     Route: 048
     Dates: start: 20200205

REACTIONS (4)
  - Intraventricular haemorrhage [Fatal]
  - Haemorrhage intracranial [Fatal]
  - Hydrocephalus [Fatal]
  - Antiphospholipid syndrome [Fatal]
